FAERS Safety Report 6073273-X (Version None)
Quarter: 2009Q1

REPORT INFORMATION
  Report Type: 
  Country: None (occurrence: None)
  Receive Date: 20090211
  Receipt Date: 20090130
  Transmission Date: 20090719
  Serious: Yes (Other)
  Sender: FDA-Public Use
  Company Number: PHHY2009MX03507

PATIENT
  Age: 62 Year
  Sex: Female

DRUGS (4)
  1. EXFORGE [Suspect]
     Indication: HYPERTENSION
     Dosage: 1 TABLET (160 MG  VALSARTAN/5 MG AMLODIPINE), PER DAY
     Route: 048
     Dates: start: 20081101
  2. OMEPRAZOL ^ACYFABRIK^ [Concomitant]
     Indication: DYSPEPSIA
  3. ACETYLSALICYLIC ACID SRT [Concomitant]
     Indication: THROMBOSIS
  4. METFORMIN HCL [Concomitant]
     Dosage: 1 DF, PER DAY
     Route: 065

REACTIONS (5)
  - DIZZINESS [None]
  - HYPOAESTHESIA [None]
  - OEDEMA PERIPHERAL [None]
  - PAIN IN EXTREMITY [None]
  - RENAL PAIN [None]
